FAERS Safety Report 21314270 (Version 1)
Quarter: 2022Q3

REPORT INFORMATION
  Report Type: Spontaneous
  Country: US (occurrence: None)
  Receive Date: 20220909
  Receipt Date: 20220909
  Transmission Date: 20221027
  Serious: No
  Sender: FDA-Public Use
  Company Number: US-ARIS GLOBAL-202109-1734

PATIENT
  Age: 54 Year
  Sex: Female

DRUGS (3)
  1. OXERVATE [Suspect]
     Active Substance: CENEGERMIN-BKBJ
     Indication: Neurotrophic keratopathy
     Route: 047
     Dates: start: 20210916
  2. TOBRADEX [Concomitant]
     Active Substance: DEXAMETHASONE\TOBRAMYCIN
     Indication: Eye pain
     Dosage: AT NIGHT
     Dates: start: 20210901, end: 20211021
  3. TOBRADEX [Concomitant]
     Active Substance: DEXAMETHASONE\TOBRAMYCIN
     Indication: Ocular hyperaemia

REACTIONS (9)
  - Eye pain [Not Recovered/Not Resolved]
  - Eyelid pain [Not Recovered/Not Resolved]
  - Dizziness [Unknown]
  - Vision blurred [Recovering/Resolving]
  - Visual impairment [Unknown]
  - Breast pain [Not Recovered/Not Resolved]
  - Lacrimation increased [Unknown]
  - Product dose omission issue [Unknown]
  - Ophthalmic migraine [Unknown]

NARRATIVE: CASE EVENT DATE: 20210925
